FAERS Safety Report 4498732-2 (Version None)
Quarter: 2004Q4

REPORT INFORMATION
  Report Type: 
  Country: None (occurrence: None)
  Receive Date: 20041108
  Receipt Date: 20041025
  Transmission Date: 20050328
  Serious: Yes (Other)
  Sender: FDA-Public Use
  Company Number: 2004076041

PATIENT
  Age: 68 Year
  Sex: Male
  Weight: 72.5755 kg

DRUGS (5)
  1. ZOLOFT [Suspect]
     Indication: ILL-DEFINED DISORDER
     Dosage: 50 MG (50 MG, 1 IN 1 D), ORAL
     Route: 048
     Dates: start: 20040901
  2. ZOLOFT [Suspect]
     Indication: MAJOR DEPRESSION
     Dosage: 50 MG (50 MG, 1 IN 1 D), ORAL
     Route: 048
     Dates: start: 20040901
  3. BUPROPION HYDROCHLORIDE [Suspect]
     Indication: MAJOR DEPRESSION
     Dosage: 450 MG, ORAL
     Route: 048
  4. CLONAZEPAM [Suspect]
     Indication: ANXIETY
     Dosage: 0.5 MG
     Dates: start: 20040901
  5. MIRTAZAPINE [Suspect]
     Indication: ILL-DEFINED DISORDER
     Dosage: 15 MG (15 MG, 1 IN 1 D)

REACTIONS (6)
  - CONDITION AGGRAVATED [None]
  - CYSTITIS [None]
  - DRUG EFFECT DECREASED [None]
  - FEELING JITTERY [None]
  - POLLAKIURIA [None]
  - URINARY RETENTION [None]
